FAERS Safety Report 6528616-7 (Version None)
Quarter: 2010Q1

REPORT INFORMATION
  Report Type: 
  Country: None (occurrence: None)
  Receive Date: 20100105
  Receipt Date: 20100105
  Transmission Date: 20100710
  Serious: Yes (Other)
  Sender: FDA-Public Use
  Company Number: None

PATIENT
  Age: 75 Year
  Sex: Female
  Weight: 70.3075 kg

DRUGS (1)
  1. TYLENOL (CAPLET) [Suspect]
     Indication: BACK PAIN
     Dosage: 2 CAPLETS ONCCE PO
     Route: 048
     Dates: start: 20091229, end: 20091229

REACTIONS (3)
  - ASTHMA [None]
  - NASAL CONGESTION [None]
  - SNEEZING [None]
